FAERS Safety Report 6190692-1 (Version None)
Quarter: 2009Q2

REPORT INFORMATION
  Report Type: 
  Country: None (occurrence: None)
  Receive Date: 20090514
  Receipt Date: 20090511
  Transmission Date: 20091009
  Serious: No
  Sender: FDA-Public Use
  Company Number: GB-EISAI INC.-E2090-00716-SPO-GB

PATIENT
  Age: 42 Year
  Sex: Female
  Weight: 80 kg

DRUGS (1)
  1. ZONEGRAN [Suspect]
     Indication: EPILEPSY
     Dosage: UNKNOWN
     Route: 048

REACTIONS (7)
  - ANGER [None]
  - CONVULSION [None]
  - DISTURBANCE IN ATTENTION [None]
  - FATIGUE [None]
  - HAEMORRHAGE [None]
  - PALPITATIONS [None]
  - RASH [None]
